FAERS Safety Report 16657184 (Version 5)
Quarter: 2019Q4

REPORT INFORMATION
  Report Type: Report from Study
  Country: US (occurrence: US)
  Receive Date: 20190801
  Receipt Date: 20191029
  Transmission Date: 20200122
  Serious: Yes (Other)
  Sender: FDA-Public Use
  Company Number: US-JNJFOC-20190631265

PATIENT
  Sex: Male

DRUGS (20)
  1. ODORLESS GARLIC [Concomitant]
  2. GREEN TEA EXTRACT [Concomitant]
  3. HUMULIN N [Concomitant]
     Active Substance: INSULIN HUMAN
  4. ATORVASTATIN CALCIUM. [Concomitant]
     Active Substance: ATORVASTATIN CALCIUM
  5. LONGS FISH OIL [Concomitant]
  6. METOPROLOL SUCCINATE. [Concomitant]
     Active Substance: METOPROLOL SUCCINATE
  7. INSULIN [Suspect]
     Active Substance: INSULIN NOS
     Indication: PRODUCT USED FOR UNKNOWN INDICATION
     Route: 065
  8. GLUCOSAMINE SULFATE [Concomitant]
     Active Substance: GLUCOSAMINE SULFATE
  9. MULTIVITAMIN ADULTS [Concomitant]
  10. IMBRUVICA [Suspect]
     Active Substance: IBRUTINIB
     Indication: CHRONIC LYMPHOCYTIC LEUKAEMIA
     Dosage: 420 MG, QD
     Route: 048
     Dates: start: 20190621
  11. BAYER ASPIRIN [Concomitant]
     Active Substance: ASPIRIN
  12. CIALIS [Concomitant]
     Active Substance: TADALAFIL
  13. ENALAPRIL MALEATE. [Concomitant]
     Active Substance: ENALAPRIL MALEATE
  14. HUMULIN R [Concomitant]
     Active Substance: INSULIN HUMAN
  15. NORVASC [Concomitant]
     Active Substance: AMLODIPINE BESYLATE
  16. VITAMIN B COMPLEX [Concomitant]
     Active Substance: CYANOCOBALAMIN\DEXPANTHENOL\NIACINAMIDE\PYRIDOXINE HYDROCHLORIDE\RIBOFLAVIN 5^-PHOSPHATE SODIUM\THIAMINE HYDROCHLORIDE\VITAMIN B COMPLEX
  17. VITAMIN E                          /00110501/ [Concomitant]
     Active Substance: TOCOPHEROL
  18. QC FERROUS SULFATE [Concomitant]
  19. GRAPE SEED EXTRACT [Concomitant]
     Active Substance: DIETARY SUPPLEMENT\GRAPE SEED EXTRACT
  20. VITAMIN C TR [Concomitant]

REACTIONS (7)
  - Blood glucose decreased [Recovering/Resolving]
  - Petechiae [Unknown]
  - Product dispensing error [Unknown]
  - Nocturia [Unknown]
  - Feeling abnormal [Unknown]
  - Adverse drug reaction [Recovering/Resolving]
  - Diabetes mellitus [Recovering/Resolving]
